FAERS Safety Report 9528310 (Version 2)
Quarter: 2013Q4

REPORT INFORMATION
  Report Type: Spontaneous
  Country: US (occurrence: US)
  Receive Date: 20130917
  Receipt Date: 20131204
  Transmission Date: 20140711
  Serious: Yes (Hospitalization, Other)
  Sender: FDA-Public Use
  Company Number: US-MERCK-1309USA006563

PATIENT
  Sex: Male

DRUGS (3)
  1. PEGINTRON [Suspect]
     Indication: HEPATITIS C
     Dosage: REDIPEN
     Dates: start: 20130608
  2. REBETOL [Suspect]
     Indication: HEPATITIS C
     Dosage: UNK
     Route: 048
     Dates: start: 20130608
  3. VICTRELIS [Suspect]
     Indication: HEPATITIS C
     Dosage: UNK
     Dates: start: 20130706, end: 20130829

REACTIONS (21)
  - Syncope [Unknown]
  - Myocardial infarction [Unknown]
  - Loss of consciousness [Unknown]
  - Neuralgia [Unknown]
  - Diabetic neuropathy [Unknown]
  - Paraesthesia [Unknown]
  - Hypoaesthesia [Unknown]
  - Peripheral coldness [Unknown]
  - Night sweats [Unknown]
  - Nocturia [Unknown]
  - Poor quality sleep [Unknown]
  - Insomnia [Unknown]
  - Skin disorder [Unknown]
  - Hyperhidrosis [Unknown]
  - Pollakiuria [Unknown]
  - Nasopharyngitis [Unknown]
  - Nausea [Unknown]
  - Asthenia [Unknown]
  - Neuropathy peripheral [Unknown]
  - Angiopathy [Unknown]
  - Depressed mood [Unknown]
